FAERS Safety Report 10193705 (Version 1)
Quarter: 2014Q2

REPORT INFORMATION
  Report Type: Spontaneous
  Country: US (occurrence: US)
  Receive Date: 20140524
  Receipt Date: 20140524
  Transmission Date: 20141212
  Serious: No
  Sender: FDA-Public Use
  Company Number: US-SA-2014SA010313

PATIENT
  Age: 55 Year
  Sex: Female

DRUGS (2)
  1. LANTUS SOLOSTAR [Suspect]
     Indication: TYPE 2 DIABETES MELLITUS
     Dosage: DOSE:30 UNIT(S)
     Route: 051
     Dates: start: 20130731, end: 20130928
  2. SOLOSTAR [Concomitant]
     Dates: start: 20130731, end: 20130928

REACTIONS (13)
  - Feeling abnormal [Recovered/Resolved]
  - Chills [Recovered/Resolved]
  - Abdominal pain upper [Not Recovered/Not Resolved]
  - Back pain [Not Recovered/Not Resolved]
  - Adverse event [Recovered/Resolved]
  - Weight increased [Recovered/Resolved]
  - Abdominal distension [Recovered/Resolved]
  - Chest discomfort [Recovered/Resolved]
  - Lipoedema [Recovered/Resolved]
  - Protein urine present [Recovered/Resolved]
  - Injection site pain [Recovered/Resolved]
  - Swelling [Not Recovered/Not Resolved]
  - Oedema [Recovered/Resolved]
